FAERS Safety Report 4590475-X (Version None)
Quarter: 2005Q1

REPORT INFORMATION
  Report Type: 
  Country: None (occurrence: None)
  Receive Date: 20050224
  Receipt Date: 20050211
  Transmission Date: 20050727
  Serious: Yes (Hospitalization)
  Sender: FDA-Public Use
  Company Number: US-809587413-K200500221

PATIENT
  Age: 68 Year
  Sex: Female

DRUGS (12)
  1. FLORINEF [Suspect]
     Indication: ORTHOSTATIC HYPOTENSION
     Dosage: .1 MG, BID
     Route: 048
     Dates: start: 19990101
  2. PROCRIT [Suspect]
     Indication: NEPHROGENIC ANAEMIA
     Dosage: 10,000 IU, QW
     Route: 058
     Dates: start: 20030903
  3. PROCRIT [Suspect]
     Dosage: 18,000 IU, QW
     Route: 058
  4. TOPROL-XL [Concomitant]
     Dates: start: 20030110
  5. ATACAND [Concomitant]
     Dates: start: 20021031
  6. LIPITOR [Concomitant]
     Dates: start: 20020101
  7. EVISTA [Concomitant]
     Dates: start: 20021031
  8. ACETYLSALICYLIC ACID [Concomitant]
     Dates: start: 19990101
  9. MULTI-VITAMINS [Concomitant]
  10. NPH INSULIN [Concomitant]
     Dates: start: 20030801
  11. REGULAR INSULIN [Concomitant]
     Dates: start: 20030801
  12. MIDODRINE HYDROCHLORIDE [Concomitant]
     Dates: start: 20040915

REACTIONS (9)
  - BLOOD CREATININE INCREASED [None]
  - BLOOD UREA INCREASED [None]
  - BLOOD URINE PRESENT [None]
  - DRUG CLEARANCE DECREASED [None]
  - GLUCOSE URINE PRESENT [None]
  - HYPOGLYCAEMIA [None]
  - HYPOKALAEMIA [None]
  - LOSS OF CONSCIOUSNESS [None]
  - URINARY TRACT INFECTION BACTERIAL [None]
